FAERS Safety Report 5750126-5 (Version None)
Quarter: 2008Q2

REPORT INFORMATION
  Report Type: 
  Country: None (occurrence: None)
  Receive Date: 20080522
  Receipt Date: 20080522
  Transmission Date: 20081010
  Serious: Yes (Hospitalization)
  Sender: FDA-Public Use
  Company Number: None

PATIENT
  Age: 58 Year
  Sex: Male
  Weight: 98.4306 kg

DRUGS (1)
  1. METOPROLOL SUCCINATE [Suspect]
     Indication: BLOOD PRESSURE ABNORMAL
     Dosage: 1 TABLET NIGHT PO
     Route: 048
     Dates: start: 20080315, end: 20080513

REACTIONS (8)
  - BLOOD PRESSURE INCREASED [None]
  - CEREBROVASCULAR ACCIDENT [None]
  - DRUG INEFFECTIVE [None]
  - HEART RATE IRREGULAR [None]
  - NIGHTMARE [None]
  - PHOTOSENSITIVITY REACTION [None]
  - THERAPEUTIC RESPONSE UNEXPECTED WITH DRUG SUBSTITUTION [None]
  - TRANSIENT ISCHAEMIC ATTACK [None]
